FAERS Safety Report 14186983 (Version 1)
Quarter: 2017Q4

REPORT INFORMATION
  Report Type: Spontaneous
  Country: US (occurrence: US)
  Receive Date: 20171114
  Receipt Date: 20171114
  Transmission Date: 20180321
  Serious: Yes (Death, Hospitalization)
  Sender: FDA-Public Use
  Company Number: US-PFIZER INC-2016472120

PATIENT
  Age: 74 Year
  Sex: Male
  Weight: 95 kg

DRUGS (36)
  1. REVATIO [Suspect]
     Active Substance: SILDENAFIL CITRATE
     Indication: PULMONARY HYPERTENSION
     Dosage: 10 MG, 3X/DAY
     Route: 048
  2. REVATIO [Suspect]
     Active Substance: SILDENAFIL CITRATE
     Dosage: 20 MG, 3X/DAY
     Route: 048
  3. COREG [Concomitant]
     Active Substance: CARVEDILOL
     Dosage: 12.5 MG, 2X/DAY [WITH MEALS]
     Route: 048
  4. VITAMIN D [Concomitant]
     Active Substance: CHOLECALCIFEROL
     Dosage: 1000 IU, 1X/DAY
     Route: 048
  5. BUMEX [Concomitant]
     Active Substance: BUMETANIDE
     Dosage: UNK, UNK [2MG AND 1MG IN THE AFTERNOON]/ (MAY TAKE AN EXTRA TAB IF WORSENING SOBOREDEMA 2+ WT. GAIN)
  6. DESYREL [Concomitant]
     Active Substance: TRAZODONE HYDROCHLORIDE
     Dosage: UNK, 1X/DAY [0.5 TABS ] [EVERY NIGHT AT BEDTIME]
     Route: 048
  7. GLUCOPHAGE [Concomitant]
     Active Substance: METFORMIN HYDROCHLORIDE
     Dosage: 1000 MG, 2X/DAY [WITH MEALS]
     Route: 048
  8. ZANTAC [Concomitant]
     Active Substance: RANITIDINE HYDROCHLORIDE
     Dosage: 150 MG, 1X/DAY
     Route: 048
  9. TYVASO [Concomitant]
     Active Substance: TREPROSTINIL
     Dosage: UNK, 4X/DAY [TAKE 2 INHALATION INHALED BY MOUTH 4 TIMES DAILY]
  10. REVATIO [Suspect]
     Active Substance: SILDENAFIL CITRATE
     Dosage: 20 MG, DAILY
     Route: 048
  11. SYNTHROID [Concomitant]
     Active Substance: LEVOTHYROXINE SODIUM
     Dosage: 25 UG, UNK [1 TAB M-F]
     Route: 048
  12. KLOR-CON [Concomitant]
     Active Substance: POTASSIUM CHLORIDE
     Dosage: 20 MEQ, 1X/DAY
     Route: 048
  13. KLOR-CON [Concomitant]
     Active Substance: POTASSIUM CHLORIDE
     Dosage: 20 MEQ, 2X/DAY
     Route: 048
  14. MAG-OX [Concomitant]
     Active Substance: MAGNESIUM OXIDE
     Dosage: 400 MG, 1X/DAY
     Route: 048
  15. FLOMAX [Concomitant]
     Active Substance: TAMSULOSIN HYDROCHLORIDE
     Dosage: 0.4 MG, 1X/DAY
     Route: 048
  16. ADVAIR HFA [Concomitant]
     Active Substance: FLUTICASONE PROPIONATE\SALMETEROL XINAFOATE
     Dosage: UNK, 2X/DAY [FLUTICASONE: 250 MCG] [SALMETEROL: 50MCG] [1 PUFF INHALED ]
     Route: 048
  17. LOSARTAN. [Concomitant]
     Active Substance: LOSARTAN
     Dosage: 100 MG, 1X/DAY
     Route: 048
  18. FLONASE [Concomitant]
     Active Substance: FLUTICASONE PROPIONATE
     Dosage: 50 UG, 2X/DAY, (50 MCG/ ACTUATION NA SPSN)
     Route: 045
  19. PROVENTIL HFA [Concomitant]
     Active Substance: ALBUTEROL SULFATE
     Dosage: 180 UG, AS NEEDED [2 PUFF INHALED ] [EVERY 4 HOURS ]
     Route: 048
  20. SYNTHROID [Concomitant]
     Active Substance: LEVOTHYROXINE SODIUM
     Dosage: UNK,  [1.5 TABS ON SAT AND SUNDAY]
  21. SINGULAIR [Concomitant]
     Active Substance: MONTELUKAST SODIUM
     Dosage: 10 MG, 1X/DAY [EVERY NIGHT AT BEDTIME]
     Route: 048
  22. APRESOLINE HYDROCHLORIDE [Concomitant]
     Active Substance: HYDRALAZINE HYDROCHLORIDE
     Dosage: 25 MG, 3X/DAY
     Route: 048
  23. K-DUR [Concomitant]
     Active Substance: POTASSIUM CHLORIDE
     Dosage: 20 MEQ, 1X/DAY
     Route: 048
  24. ZOFRAN [Concomitant]
     Active Substance: ONDANSETRON HYDROCHLORIDE
     Dosage: 4 MG, AS NEEDED [2 TIMES DAILY ]
     Route: 048
  25. TYVASO [Concomitant]
     Active Substance: TREPROSTINIL
     Dosage: UNK UNK, 4X/DAY [3 INHALATION]
  26. ZAROXOLYN [Concomitant]
     Active Substance: METOLAZONE
     Dosage: 2.5 MG, AS NEEDED [EVERY MONDAY, WEDNESDAY AND FRIDAY]
     Route: 048
  27. XANAX [Concomitant]
     Active Substance: ALPRAZOLAM
     Dosage: 0.6 MG, AS NEEDED [EVERY 8 HOURS ]
     Route: 048
  28. K-DUR [Concomitant]
     Active Substance: POTASSIUM CHLORIDE
     Dosage: 20 MEQ, 2X/DAY
     Route: 048
  29. OXYGEN. [Concomitant]
     Active Substance: OXYGEN
     Dosage: UNK, AS NEEDED [ROUTE NIGHTLY AS NEEDED]
  30. BUMEX [Concomitant]
     Active Substance: BUMETANIDE
     Dosage: 1 MG, 2X/DAY
     Route: 048
  31. ZAROXOLYN [Concomitant]
     Active Substance: METOLAZONE
     Dosage: 2.5 MG, AS NEEDED [EVERY OTHER DAY]
     Route: 048
  32. APRESOLINE HYDROCHLORIDE [Concomitant]
     Active Substance: HYDRALAZINE HYDROCHLORIDE
     Dosage: 12.5 MG, 3X/DAY
     Route: 048
  33. MEVACOR [Concomitant]
     Active Substance: LOVASTATIN
     Dosage: 20 MG, 1X/DAY [EVERY NIGHT AT BEDTIME]
     Route: 048
  34. LEXAPRO [Concomitant]
     Active Substance: ESCITALOPRAM OXALATE
     Dosage: 20 MG, 1X/DAY
     Route: 048
  35. ASPIRIN (E.C.) [Concomitant]
     Active Substance: ASPIRIN
     Dosage: 81 MG, 1X/DAY
     Route: 048
  36. RESTASIS [Concomitant]
     Active Substance: CYCLOSPORINE
     Dosage: 2 GTT, AS NEEDED [1 DROP IN AFFECTED EYE DAILY]/ (BOTH EYES)
     Route: 047

REACTIONS (1)
  - Pulmonary arterial hypertension [Fatal]
